FAERS Safety Report 25434391 (Version 1)
Quarter: 2025Q2

REPORT INFORMATION
  Report Type: Spontaneous
  Country: DE (occurrence: DE)
  Receive Date: 20250613
  Receipt Date: 20250613
  Transmission Date: 20250717
  Serious: Yes (Other)
  Sender: PFIZER
  Company Number: DE-PFIZER INC-PV202500070609

PATIENT
  Sex: Male

DRUGS (1)
  1. TAFAMIDIS [Suspect]
     Active Substance: TAFAMIDIS

REACTIONS (3)
  - Renal impairment [Unknown]
  - Off label use [Unknown]
  - Product use issue [Unknown]
